FAERS Safety Report 19257484 (Version 3)
Quarter: 2021Q2

REPORT INFORMATION
  Report Type: Report from Study
  Country: None (occurrence: RO)
  Receive Date: 20210513
  Receipt Date: 20210619
  Transmission Date: 20210717
  Serious: Yes (Hospitalization)
  Sender: FDA-Public Use
  Company Number: RO-ABBVIE-21K-135-3902061-00

PATIENT
  Age: 66 Year
  Sex: Male

DRUGS (2)
  1. DUODOPA [Suspect]
     Active Substance: CARBIDOPA\LEVODOPA
     Indication: PARKINSON^S DISEASE
     Dosage: DM7.00, DC5.60, ED2.20, NRED2; DMN0.00, DCN0.00, EDN0.00, NREDN0
     Route: 050
     Dates: start: 20190411
  2. DUODOPA [Suspect]
     Active Substance: CARBIDOPA\LEVODOPA
     Dosage: DM 7.00, DC 4.70, ED 1.50, NRED 2, DMN 0.00, DCN 0.00, EDN 0.00, NREDN 0.
     Route: 050

REACTIONS (5)
  - Hip fracture [Recovering/Resolving]
  - Aggression [Unknown]
  - Fall [Unknown]
  - Femoral neck fracture [Recovering/Resolving]
  - Agitation [Unknown]

NARRATIVE: CASE EVENT DATE: 20210511
